FAERS Safety Report 6172078-9 (Version None)
Quarter: 2009Q2

REPORT INFORMATION
  Report Type: 
  Country: None (occurrence: None)
  Receive Date: 20090424
  Receipt Date: 20090210
  Transmission Date: 20091009
  Serious: No
  Sender: FDA-Public Use
  Company Number: ALL1-2009-00354

PATIENT
  Age: 52 Year
  Sex: Female
  Weight: 64.4 kg

DRUGS (6)
  1. VYVANSE [Suspect]
     Indication: ATTENTION DEFICIT/HYPERACTIVITY DISORDER
     Dosage: 20 MG, 1X/DAY:QD, ORAL ; 70 MG, 1X/DAY:QD, ORAL
     Route: 048
     Dates: start: 20080101
  2. VYVANSE [Suspect]
     Indication: ATTENTION DEFICIT/HYPERACTIVITY DISORDER
     Dosage: 20 MG, 1X/DAY:QD, ORAL ; 70 MG, 1X/DAY:QD, ORAL
     Route: 048
     Dates: start: 20090201
  3. UNITHROID (LEVOTHYROXINE SODIUM) [Concomitant]
  4. CYTOMEL [Concomitant]
  5. CITALOPRAM HYDROBROMIDE [Concomitant]
  6. ALPRAZOLAM [Concomitant]

REACTIONS (2)
  - DRY MOUTH [None]
  - VISION BLURRED [None]
